FAERS Safety Report 18260480 (Version 1)
Quarter: 2020Q3

REPORT INFORMATION
  Report Type: Spontaneous
  Country: DE (occurrence: DE)
  Receive Date: 20200914
  Receipt Date: 20200914
  Transmission Date: 20201103
  Serious: Yes (Other)
  Sender: FDA-Public Use
  Company Number: DE-TEVA-2020-DE-1825508

PATIENT
  Age: 1 Day
  Sex: Female
  Weight: 2.52 kg

DRUGS (2)
  1. ESCITALOPRAM [Suspect]
     Active Substance: ESCITALOPRAM OXALATE
     Indication: DEPRESSION
     Dosage: UNIT DOSE : 20 MILLIGRAM, 0. ? 40.1. GESTATIONAL WEEK
     Route: 064
     Dates: start: 20190305, end: 20191211
  2. FOLSAN [Concomitant]
     Active Substance: FOLIC ACID
     Indication: VITAMIN SUPPLEMENTATION
     Dosage: 19.6. ? 19.6. GESTATIONAL WEEK
     Route: 064
     Dates: start: 20190722, end: 20190722

REACTIONS (2)
  - Foetal exposure during pregnancy [Unknown]
  - Small for dates baby [Recovering/Resolving]

NARRATIVE: CASE EVENT DATE: 20191211
